FAERS Safety Report 14197505 (Version 4)
Quarter: 2018Q1

REPORT INFORMATION
  Report Type: Spontaneous
  Country: RU (occurrence: RU)
  Receive Date: 20171116
  Receipt Date: 20180123
  Transmission Date: 20180508
  Serious: Yes (Other)
  Sender: FDA-Public Use
  Company Number: RU-ASTRAZENECA-2017SF16204

PATIENT
  Age: 75 Year
  Sex: Female
  Weight: 59 kg

DRUGS (8)
  1. THROMBO ASS [Concomitant]
     Active Substance: ASPIRIN
  2. EGILOK [Concomitant]
     Active Substance: METOPROLOL TARTRATE
  3. ESSENTIALE FORTE N [Concomitant]
  4. BRILINTA [Suspect]
     Active Substance: TICAGRELOR
     Indication: MYOCARDIAL INFARCTION
     Route: 048
     Dates: start: 201708
  5. OMEPRAZOLE. [Concomitant]
     Active Substance: OMEPRAZOLE
  6. ENAP [Concomitant]
     Active Substance: ENALAPRIL
  7. ATORVASTATIN [Concomitant]
     Active Substance: ATORVASTATIN
  8. TRIMETAZIDINE [Concomitant]
     Active Substance: TRIMETAZIDINE

REACTIONS (5)
  - Angina pectoris [Not Recovered/Not Resolved]
  - Blood pressure increased [Recovered/Resolved]
  - Contusion [Not Recovered/Not Resolved]
  - Hepatic pain [Not Recovered/Not Resolved]
  - Abdominal pain upper [Not Recovered/Not Resolved]

NARRATIVE: CASE EVENT DATE: 201709
